FAERS Safety Report 5171115-8 (Version None)
Quarter: 2006Q4

REPORT INFORMATION
  Report Type: 
  Country: None (occurrence: None)
  Receive Date: 20061213
  Receipt Date: 20061031
  Transmission Date: 20070319
  Serious: Yes (Hospitalization)
  Sender: FDA-Public Use
  Company Number: US-BAYER-200616256BWH

PATIENT
  Age: 63 Year
  Sex: Female

DRUGS (23)
  1. SORAFENIB [Suspect]
     Indication: NON-SMALL CELL LUNG CANCER
     Dosage: TOTAL DAILY DOSE: 800 MG  UNIT DOSE: 200 MG
     Route: 048
     Dates: start: 20060718, end: 20060804
  2. SORAFENIB [Suspect]
     Dosage: TOTAL DAILY DOSE: 800 MG  UNIT DOSE: 200 MG
     Route: 048
     Dates: start: 20060808, end: 20060825
  3. SORAFENIB [Suspect]
     Dosage: TOTAL DAILY DOSE: 800 MG  UNIT DOSE: 200 MG
     Route: 048
     Dates: start: 20060906, end: 20060923
  4. SORAFENIB [Suspect]
     Dosage: TOTAL DAILY DOSE: 800 MG  UNIT DOSE: 200 MG
     Route: 048
     Dates: start: 20061004, end: 20061021
  5. CARBOPLATIN [Suspect]
     Indication: NON-SMALL CELL LUNG CANCER
     Route: 042
     Dates: start: 20061003, end: 20061003
  6. CARBOPLATIN [Suspect]
     Route: 042
     Dates: start: 20060905, end: 20060905
  7. CARBOPLATIN [Suspect]
     Route: 042
     Dates: start: 20060717, end: 20060717
  8. CARBOPLATIN [Suspect]
     Route: 042
     Dates: start: 20060807, end: 20060807
  9. PACLITAXEL [Suspect]
     Indication: NON-SMALL CELL LUNG CANCER
     Route: 042
     Dates: start: 20061003, end: 20061003
  10. PACLITAXEL [Suspect]
     Route: 042
     Dates: start: 20060717, end: 20060717
  11. PACLITAXEL [Suspect]
     Route: 042
     Dates: start: 20060807, end: 20060807
  12. PACLITAXEL [Suspect]
     Route: 042
     Dates: start: 20060905, end: 20060905
  13. SYNTHROID [Concomitant]
     Indication: HYPOTHYROIDISM
     Route: 048
     Dates: start: 20060101
  14. ZOCOR [Concomitant]
     Indication: BLOOD CHOLESTEROL INCREASED
     Route: 048
     Dates: start: 20060101
  15. VASOTEC [Concomitant]
     Indication: HYPERTENSION
     Route: 048
     Dates: start: 20060101
  16. ACTOS [Concomitant]
     Indication: DIABETES MELLITUS
     Route: 048
     Dates: start: 20060101
  17. IRON [Concomitant]
     Indication: ANAEMIA
     Route: 048
     Dates: start: 20060101
  18. GLUCOPHAGE [Concomitant]
     Indication: DIABETES MELLITUS
     Route: 048
     Dates: start: 20060101
  19. COMPAZINE [Concomitant]
     Indication: NAUSEA
     Route: 048
     Dates: start: 20060101
  20. AMBIEN [Concomitant]
     Indication: INSOMNIA
     Route: 048
     Dates: start: 20060101
  21. DEXAMETHASONE [Concomitant]
     Indication: PROPHYLACTIC CHEMOTHERAPY
  22. ZYRTEC [Concomitant]
     Indication: SEASONAL ALLERGY
     Route: 048
     Dates: start: 20060731
  23. ARANESP [Concomitant]
     Indication: ANAEMIA
     Route: 058
     Dates: start: 20060814

REACTIONS (6)
  - BONE MARROW FAILURE [None]
  - DIARRHOEA [None]
  - EROSIVE DUODENITIS [None]
  - GASTRITIS EROSIVE [None]
  - PANCYTOPENIA [None]
  - POST PROCEDURAL COMPLICATION [None]
